FAERS Safety Report 12530058 (Version 2)
Quarter: 2017Q1

REPORT INFORMATION
  Report Type: Spontaneous
  Country: None (occurrence: US)
  Receive Date: 20160706
  Receipt Date: 20170301
  Transmission Date: 20170428
  Serious: Yes (Hospitalization, Other)
  Sender: FDA-Public Use
  Company Number: US-AMAG PHARMACEUTICALS, INC.-AMAG201601121

PATIENT

DRUGS (2)
  1. SYNTHROID [Concomitant]
     Active Substance: LEVOTHYROXINE SODIUM
     Indication: THYROIDECTOMY
     Dosage: 150 ?G, UNK
     Route: 048
  2. MAKENA [Suspect]
     Active Substance: HYDROXYPROGESTERONE CAPROATE
     Indication: PREMATURE DELIVERY
     Dosage: 250 MG, WEEKLY
     Route: 030
     Dates: end: 20160608

REACTIONS (6)
  - Amniotic cavity infection [Unknown]
  - Premature rupture of membranes [Unknown]
  - Malaise [Unknown]
  - Hypoaesthesia [Unknown]
  - Premature delivery [Unknown]
  - Muscle spasms [Unknown]

NARRATIVE: CASE EVENT DATE: 20160612
